FAERS Safety Report 5810156-1 (Version None)
Quarter: 2008Q3

REPORT INFORMATION
  Report Type: 
  Country: None (occurrence: None)
  Receive Date: 20080715
  Receipt Date: 20070927
  Transmission Date: 20090109
  Serious: No
  Sender: FDA-Public Use
  Company Number: A0671191A

PATIENT
  Age: 40 Year
  Sex: Female

DRUGS (2)
  1. IMITREX [Suspect]
     Indication: MIGRAINE
     Dosage: 100MG PER DAY
     Route: 048
     Dates: start: 20070815, end: 20070815
  2. METOPROLOL [Concomitant]

REACTIONS (3)
  - ADVERSE DRUG REACTION [None]
  - CHEST PAIN [None]
  - HYPOAESTHESIA [None]
